FAERS Safety Report 23632044 (Version 2)
Quarter: 2024Q1

REPORT INFORMATION
  Report Type: Spontaneous
  Country: CN (occurrence: CN)
  Receive Date: 20240314
  Receipt Date: 20240320
  Transmission Date: 20240410
  Serious: Yes (Other)
  Sender: FDA-Public Use
  Company Number: CN-ORPHANEU-2024001558

PATIENT

DRUGS (1)
  1. SILTUXIMAB [Suspect]
     Active Substance: SILTUXIMAB
     Indication: Castleman^s disease
     Dosage: 500 MILLIGRAMS (SPECIFICATION OF 100 MILLIGRAMS + SPECIFICATION OF 400 MILLIGRAMS) EVERY MORE THAN 2
     Dates: start: 20221208

REACTIONS (5)
  - Ascites [Unknown]
  - Oedema peripheral [Not Recovered/Not Resolved]
  - Eye oedema [Not Recovered/Not Resolved]
  - Therapeutic product effect decreased [Recovered/Resolved]
  - Off label use [Recovered/Resolved]

NARRATIVE: CASE EVENT DATE: 20221208
